FAERS Safety Report 5234240-9 (Version None)
Quarter: 2007Q1

REPORT INFORMATION
  Report Type: 
  Country: None (occurrence: None)
  Receive Date: 20070207
  Receipt Date: 20070123
  Transmission Date: 20070707
  Serious: Yes (Other)
  Sender: FDA-Public Use
  Company Number: 009316

PATIENT
  Age: 80 Year
  Sex: Female

DRUGS (9)
  1. ZEBETA [Suspect]
     Indication: HYPERTENSION
     Dosage: SEE IMAGE
     Route: 048
     Dates: start: 20051201, end: 20061101
  2. ZEBETA [Suspect]
     Indication: HYPERTENSION
     Dosage: SEE IMAGE
     Route: 048
     Dates: start: 20061101, end: 20061201
  3. ZEBETA [Suspect]
     Indication: HYPERTENSION
     Dosage: SEE IMAGE
     Route: 048
     Dates: start: 20061201
  4. LIPITOR [Concomitant]
  5. ALAVERT [Concomitant]
  6. ASPIRIN [Concomitant]
  7. PRILOSEC [Concomitant]
  8. COMBIVENT [Concomitant]
  9. COSOPT [Concomitant]

REACTIONS (5)
  - BLOOD PRESSURE INADEQUATELY CONTROLLED [None]
  - BLOOD PRESSURE INCREASED [None]
  - CARDIAC VALVE DISEASE [None]
  - FATIGUE [None]
  - MITRAL VALVE CALCIFICATION [None]
